FAERS Safety Report 25087025 (Version 1)
Quarter: 2025Q1

REPORT INFORMATION
  Report Type: Report from Study
  Country: TR (occurrence: TR)
  Receive Date: 20250318
  Receipt Date: 20250318
  Transmission Date: 20250408
  Serious: No
  Sender: JOHNSON AND JOHNSON
  Company Number: TR-JNJFOC-20250302824

PATIENT
  Sex: Female

DRUGS (4)
  1. BOSENTAN [Suspect]
     Active Substance: BOSENTAN
     Indication: Pulmonary arterial hypertension
     Route: 048
  2. SILDENAFIL [Suspect]
     Active Substance: SILDENAFIL
  3. ENOXAPARIN [Concomitant]
     Active Substance: ENOXAPARIN
  4. ILOPROST [Concomitant]
     Active Substance: ILOPROST

REACTIONS (1)
  - Exposure during pregnancy [Unknown]
